FAERS Safety Report 4654490-X (Version None)
Quarter: 2005Q2

REPORT INFORMATION
  Report Type: 
  Country: None (occurrence: None)
  Receive Date: 20050404
  Receipt Date: 20041208
  Transmission Date: 20051028
  Serious: No
  Sender: FDA-Public Use
  Company Number: USA041285602

PATIENT
  Age: 57 Year
  Sex: Male
  Weight: 77 kg

DRUGS (6)
  1. CYMBALTA [Suspect]
     Indication: DEPRESSION
     Dosage: 60 MG DAY
     Dates: start: 20040901
  2. EX-LAX STOOL SOFTENER (DOCUSATE SODIUM) [Concomitant]
  3. PREDNISOLONE ACETATE [Concomitant]
  4. TRIFLURIDINE [Concomitant]
  5. ACYCLOVIR (ACICLOVIR EG) [Concomitant]
  6. TRAZODONE [Concomitant]

REACTIONS (7)
  - AMNESIA [None]
  - BALANCE DISORDER [None]
  - CONSTIPATION [None]
  - ERECTILE DYSFUNCTION [None]
  - INCREASED APPETITE [None]
  - SOMNOLENCE [None]
  - TREMOR [None]
